FAERS Safety Report 8108124-2 (Version None)
Quarter: 2012Q1

REPORT INFORMATION
  Report Type: 
  Country: None (occurrence: None)
  Receive Date: 20120202
  Receipt Date: 20120127
  Transmission Date: 20120608
  Serious: Yes (Other)
  Sender: FDA-Public Use
  Company Number: BR-PFIZER INC-2011164264

PATIENT
  Age: 54 Year
  Sex: Female
  Weight: 74 kg

DRUGS (4)
  1. CLONAZEPAM [Concomitant]
     Indication: RELAXATION THERAPY
  2. CLONAZEPAM [Concomitant]
     Indication: AGITATION
  3. PRISTIQ [Suspect]
     Indication: DEPRESSION
     Dosage: 50 MG, 1X/DAY
     Route: 048
     Dates: start: 20110101
  4. CLONAZEPAM [Concomitant]
     Indication: DEPRESSION
     Dosage: 2 MG, 1X/DAY
     Route: 060
     Dates: start: 20110201

REACTIONS (14)
  - DRUG DEPENDENCE [None]
  - MENTAL DISORDER [None]
  - CONFUSIONAL STATE [None]
  - NERVOUSNESS [None]
  - MEMORY IMPAIRMENT [None]
  - LISTLESS [None]
  - NERVOUS SYSTEM DISORDER [None]
  - ANXIETY [None]
  - AGITATION [None]
  - ASTHENIA [None]
  - TREMOR [None]
  - VISION BLURRED [None]
  - DECREASED APPETITE [None]
  - HEADACHE [None]
